FAERS Safety Report 20292091 (Version 1)
Quarter: 2022Q1

REPORT INFORMATION
  Report Type: Spontaneous
  Country: FR (occurrence: FR)
  Receive Date: 20220104
  Receipt Date: 20220104
  Transmission Date: 20220423
  Serious: Yes (Hospitalization)
  Sender: FDA-Public Use
  Company Number: None

PATIENT
  Age: 75 Year
  Sex: Female
  Weight: 60 kg

DRUGS (8)
  1. DOXORUBICIN [Suspect]
     Active Substance: DOXORUBICIN
     Indication: Non-Hodgkin^s lymphoma
     Dosage: 1 DOSAGE FORM
     Route: 041
     Dates: start: 20211014
  2. COMIRNATY [Suspect]
     Active Substance: TOZINAMERAN
     Indication: COVID-19 immunisation
     Dosage: 1 DOSAGE FORM, D1
     Route: 030
     Dates: start: 20210323
  3. COMIRNATY [Suspect]
     Active Substance: TOZINAMERAN
     Dosage: 1 DOSAGE FORM, D3
     Route: 030
     Dates: start: 20211011
  4. COMIRNATY [Suspect]
     Active Substance: TOZINAMERAN
     Dosage: 1 DOSAGE FORM, D2
     Route: 030
     Dates: start: 20210426
  5. OBINUTUZUMAB [Suspect]
     Active Substance: OBINUTUZUMAB
     Indication: Non-Hodgkin^s lymphoma
     Dosage: 1 DOSAGE FORM
     Route: 041
     Dates: start: 20211014
  6. CYCLOPHOSPHAMIDE [Suspect]
     Active Substance: CYCLOPHOSPHAMIDE
     Indication: Non-Hodgkin^s lymphoma
     Dosage: 1 DOSAGE FORM
     Route: 041
     Dates: start: 20211014
  7. VINCRISTINE SULFATE [Suspect]
     Active Substance: VINCRISTINE SULFATE
     Indication: Non-Hodgkin^s lymphoma
     Dosage: 1 DOSAGE FORM
     Route: 041
     Dates: start: 20211014
  8. PREDNISONE [Suspect]
     Active Substance: PREDNISONE
     Indication: Non-Hodgkin^s lymphoma
     Dosage: 1 DOSAGE FORM
     Route: 041
     Dates: start: 20211014

REACTIONS (2)
  - Vaccination failure [Recovering/Resolving]
  - COVID-19 pneumonia [Recovering/Resolving]

NARRATIVE: CASE EVENT DATE: 20211115
